FAERS Safety Report 9336633 (Version 1)
Quarter: 2013Q2

REPORT INFORMATION
  Report Type: Report from Study
  Country: DE (occurrence: DE)
  Receive Date: 20130607
  Receipt Date: 20130607
  Transmission Date: 20140414
  Serious: Yes (Hospitalization, Disabling)
  Sender: FDA-Public Use
  Company Number: PHHO2013DE006602

PATIENT
  Age: 5 Year
  Sex: Female
  Weight: 17 kg

DRUGS (4)
  1. IMATINIB [Suspect]
     Indication: ACUTE LYMPHOCYTIC LEUKAEMIA
     Dosage: 200 MG DAILY
     Route: 048
     Dates: start: 20121011
  2. DEXAMETHASONE [Concomitant]
     Indication: ACUTE LYMPHOCYTIC LEUKAEMIA
     Dosage: 2 MG, UNK
     Route: 048
     Dates: start: 20130416
  3. COTRIMAXAZOLE [Concomitant]
     Route: 048
  4. PENICILLIN                         /02215301/ [Concomitant]
     Route: 048

REACTIONS (1)
  - Encephalopathy [Not Recovered/Not Resolved]
